FAERS Safety Report 12625031 (Version 2)
Quarter: 2016Q3

REPORT INFORMATION
  Report Type: Spontaneous
  Country: US (occurrence: US)
  Receive Date: 20160805
  Receipt Date: 20160830
  Transmission Date: 20161109
  Serious: No
  Sender: FDA-Public Use
  Company Number: US-BRISTOL-MYERS SQUIBB COMPANY-BMS-2016-062790

PATIENT
  Age: 60 Year
  Sex: Female

DRUGS (3)
  1. COUMADIN [Suspect]
     Active Substance: WARFARIN SODIUM
     Dosage: 7.5 MG, QWK
     Route: 065
     Dates: start: 200712
  2. TIKOSYN [Concomitant]
     Active Substance: DOFETILIDE
     Indication: ATRIAL FIBRILLATION
     Dosage: 0.5 MG, BID
     Route: 065
     Dates: start: 200712, end: 20160727
  3. COUMADIN [Suspect]
     Active Substance: WARFARIN SODIUM
     Indication: PROTHROMBIN LEVEL DECREASED
     Dosage: 5 MG, QD
     Route: 065
     Dates: start: 200712

REACTIONS (4)
  - Heart rate increased [Recovering/Resolving]
  - Product container seal issue [Unknown]
  - Drug ineffective [Not Recovered/Not Resolved]
  - International normalised ratio abnormal [Unknown]

NARRATIVE: CASE EVENT DATE: 201603
